FAERS Safety Report 23679400 (Version 1)
Quarter: 2024Q1

REPORT INFORMATION
  Report Type: Spontaneous
  Country: US (occurrence: None)
  Receive Date: 20240327
  Receipt Date: 20240327
  Transmission Date: 20240409
  Serious: Yes (Hospitalization)
  Sender: FDA-Public Use
  Company Number: None

PATIENT
  Sex: Male

DRUGS (11)
  1. TACROLIMUS [Suspect]
     Active Substance: TACROLIMUS
     Indication: Liver transplant
     Dosage: 7 MG BID ORAL
     Route: 048
     Dates: start: 20231004
  2. SUFAMENTIN/TRIMETIN [Concomitant]
  3. VEITASSA [Concomitant]
  4. URSODIOL [Concomitant]
     Active Substance: URSODIOL
  5. PREDNISONE [Concomitant]
     Active Substance: PREDNISONE
  6. HUMALOG [Concomitant]
     Active Substance: INSULIN LISPRO
  7. VALGANCICLOVIR [Concomitant]
     Active Substance: VALGANCICLOVIR
  8. FLUCONAZLE [Concomitant]
  9. FLOMAZOLE [Concomitant]
  10. FLOMAX [Concomitant]
     Active Substance: TAMSULOSIN HYDROCHLORIDE
  11. LEXAPRO [Concomitant]
     Active Substance: ESCITALOPRAM OXALATE

REACTIONS (2)
  - Hyperkalaemia [None]
  - Escherichia infection [None]
